FAERS Safety Report 5319113-5 (Version None)
Quarter: 2007Q2

REPORT INFORMATION
  Report Type: 
  Country: None (occurrence: None)
  Receive Date: 20070508
  Receipt Date: 20070504
  Transmission Date: 20071010
  Serious: Yes (Hospitalization)
  Sender: FDA-Public Use
  Company Number: A0650278A

PATIENT
  Age: 50 Year
  Sex: Female
  Weight: 68 kg

DRUGS (13)
  1. LITHIUM CARBONATE [Suspect]
     Dosage: 450MGD UNKNOWN
     Route: 065
  2. REVLIMID [Suspect]
     Indication: MULTIPLE MYELOMA
     Dosage: 25MG PER DAY
     Route: 048
     Dates: start: 20060701
  3. TYLENOL [Concomitant]
  4. ACYCLOVIR [Concomitant]
  5. CEFEPIME [Concomitant]
  6. FOLIC ACID [Concomitant]
  7. HALDOL [Concomitant]
  8. SYNTHROID [Concomitant]
  9. ATIVAN [Concomitant]
  10. PROTONIX [Concomitant]
  11. QUETIAPINE FUMARATE [Concomitant]
  12. OLANZAPINE [Concomitant]
  13. ZIPRASIDONE HCL [Concomitant]

REACTIONS (4)
  - DRUG INTERACTION [None]
  - DRUG LEVEL INCREASED [None]
  - ENCEPHALOPATHY [None]
  - THERAPEUTIC AGENT TOXICITY [None]
